FAERS Safety Report 6743325-7 (Version None)
Quarter: 2010Q2

REPORT INFORMATION
  Report Type: 
  Country: None (occurrence: None)
  Receive Date: 20100527
  Receipt Date: 20100512
  Transmission Date: 20101027
  Serious: Yes (Death)
  Sender: FDA-Public Use
  Company Number: ES-ELI_LILLY_AND_COMPANY-ES201005003062

PATIENT
  Sex: Male
  Weight: 98 kg

DRUGS (7)
  1. FORTEO [Suspect]
     Indication: OSTEOPOROSIS
     Dosage: 20 UG, DAILY (1/D)
     Route: 058
     Dates: start: 20100208, end: 20100509
  2. YURELAX [Concomitant]
     Indication: ANXIETY
     Dosage: 3 D/F, DAILY (1/D)
     Route: 048
  3. PERPHENAZINE [Concomitant]
     Indication: PARANOIA
     Dosage: 1 D/F, DAILY (1/D)
     Route: 048
  4. RIVOTRIL [Concomitant]
     Indication: ANXIETY
     Dosage: 1.5 D/F, DAILY (1/D)
     Route: 048
  5. LORAZEPAM [Concomitant]
     Indication: ANXIETY
     Dosage: 1 D/F, DAILY (1/D)
     Route: 048
  6. SINOGAN [Concomitant]
     Indication: PARANOIA
     Dosage: 8 D/F, DAILY (1/D)
     Route: 048
  7. URSOBILANE [Concomitant]
     Indication: INFLAMMATION
     Dosage: 3 D/F, DAILY (1/D)
     Route: 048

REACTIONS (2)
  - NOSOCOMIAL INFECTION [None]
  - PNEUMONIA [None]
